FAERS Safety Report 10145459 (Version 2)
Quarter: 2014Q2

REPORT INFORMATION
  Report Type: Report from Study
  Country: DE (occurrence: DE)
  Receive Date: 20140501
  Receipt Date: 20140501
  Transmission Date: 20141212
  Serious: Yes (Hospitalization)
  Sender: FDA-Public Use
  Company Number: DE-ROCHE-1370818

PATIENT
  Age: 25 Year
  Sex: Male

DRUGS (2)
  1. ZELBORAF [Suspect]
     Indication: METASTATIC MALIGNANT MELANOMA
     Route: 048
     Dates: start: 20140124, end: 20140203
  2. ZOLPIDEM [Concomitant]
     Indication: SLEEP DISORDER
     Dosage: 0 - 0-1
     Route: 048
     Dates: start: 20131001

REACTIONS (5)
  - Rash [Recovered/Resolved]
  - Pyrexia [Recovered/Resolved]
  - Nausea [Unknown]
  - Viral infection [Recovered/Resolved]
  - General physical health deterioration [Recovered/Resolved]
